FAERS Safety Report 9776349 (Version 1)
Quarter: 2013Q4

REPORT INFORMATION
  Report Type: Spontaneous
  Country: AT (occurrence: AT)
  Receive Date: 20131220
  Receipt Date: 20131220
  Transmission Date: 20140711
  Serious: Yes (Hospitalization)
  Sender: FDA-Public Use
  Company Number: PHHY2013AT147014

PATIENT
  Age: 74 Year
  Sex: Male

DRUGS (3)
  1. EBETREXAT [Suspect]
     Indication: RHEUMATOID ARTHRITIS
     Dosage: 20 MG, QW
     Dates: start: 2006
  2. APREDNISLON [Suspect]
     Indication: RHEUMATOID ARTHRITIS
     Dosage: 5 MG, QD
     Dates: start: 2006
  3. REMICADE [Suspect]
     Indication: RHEUMATOID ARTHRITIS
     Dosage: 300 MG, Q2MO
     Dates: start: 2006

REACTIONS (3)
  - Acute coronary syndrome [Recovered/Resolved]
  - Angiogram [Recovered/Resolved]
  - Stent placement [Recovered/Resolved]
